FAERS Safety Report 10739544 (Version 1)
Quarter: 2015Q1

REPORT INFORMATION
  Report Type: Spontaneous
  Country: US (occurrence: US)
  Receive Date: 20150126
  Receipt Date: 20150126
  Transmission Date: 20150721
  Serious: No
  Sender: FDA-Public Use
  Company Number: US-BAUSCH-SYM-2013-13017

PATIENT
  Age: 74 Year
  Sex: Male
  Weight: 61.74 kg

DRUGS (4)
  1. COMPOUNDED ALLEREX [Concomitant]
     Indication: PRODUCT USED FOR UNKNOWN INDICATION
     Dates: end: 201311
  2. GENERIC TESSILON PEARLS 200 MG [Concomitant]
     Indication: PRODUCT USED FOR UNKNOWN INDICATION
     Dates: end: 201311
  3. LUVOX 50 MG [Concomitant]
     Indication: PRODUCT USED FOR UNKNOWN INDICATION
     Dates: end: 201311
  4. XENAZINE [Suspect]
     Active Substance: TETRABENAZINE
     Indication: TOURETTE^S DISORDER
     Dosage: 12.5 MG 3 TIMES DAILY: 1.5 TABLETS IN THE MORNING, 1.5 TABLETS IN THE AFTERNOON, AND 1 TABLET IN THE
     Route: 048
     Dates: start: 2005

REACTIONS (3)
  - Somnolence [Recovered/Resolved]
  - Medication error [Recovered/Resolved]
  - Gait disturbance [Recovered/Resolved]

NARRATIVE: CASE EVENT DATE: 201311
